FAERS Safety Report 18176439 (Version 1)
Quarter: 2020Q3

REPORT INFORMATION
  Report Type: Spontaneous
  Country: PL (occurrence: PL)
  Receive Date: 20200820
  Receipt Date: 20200820
  Transmission Date: 20201103
  Serious: Yes (Hospitalization)
  Sender: FDA-Public Use
  Company Number: PL-MYLANLABS-2020M1071525

PATIENT
  Age: 59 Year
  Sex: Female

DRUGS (9)
  1. OXYCODONE [Suspect]
     Active Substance: OXYCODONE
     Indication: PAIN
     Dosage: 30 MILLIGRAM, QD
  2. DEXAMETHASONE. [Suspect]
     Active Substance: DEXAMETHASONE
     Indication: PAIN
     Dosage: UNK
  3. FENTANYL. [Suspect]
     Active Substance: FENTANYL
     Indication: PAIN
     Dosage: 150 MICROGRAM, QH
     Route: 062
  4. DULOXETINE. [Suspect]
     Active Substance: DULOXETINE
     Indication: PAIN
     Dosage: 60 MILLIGRAM, QD
  5. PARACETAMOL [Suspect]
     Active Substance: ACETAMINOPHEN
     Indication: PAIN
     Dosage: PERIODICALLY
  6. NALOXONE W/OXYCODONE [Suspect]
     Active Substance: NALOXONE HYDROCHLORIDE\OXYCODONE HYDROCHLORIDE
     Indication: PAIN
     Dosage: OXYCODONE/NALOXONE 40 MG/20 MG DAILY
  7. PREGABALIN. [Suspect]
     Active Substance: PREGABALIN
     Indication: PAIN
     Dosage: 450 MILLIGRAM, QD
  8. METAMIZOLE [Suspect]
     Active Substance: METAMIZOLE
     Indication: PAIN
     Dosage: PERIODICALLY
  9. MORPHINE [Suspect]
     Active Substance: MORPHINE
     Indication: PAIN
     Dosage: GRADUALLY INCREASED TO 36 MG/DAY
     Route: 058

REACTIONS (4)
  - Therapeutic product effect incomplete [Recovering/Resolving]
  - Affective disorder [Unknown]
  - Decreased appetite [Unknown]
  - Constipation [Unknown]
